FAERS Safety Report 17788275 (Version 2)
Quarter: 2020Q2

REPORT INFORMATION
  Report Type: Spontaneous
  Country: US (occurrence: US)
  Receive Date: 20200515
  Receipt Date: 20200521
  Transmission Date: 20200714
  Serious: Yes (Hospitalization)
  Sender: FDA-Public Use
  Company Number: US-MTPC-MTDA2020-0052700

PATIENT
  Sex: Female

DRUGS (1)
  1. RADICAVA [Suspect]
     Active Substance: EDARAVONE
     Indication: AMYOTROPHIC LATERAL SCLEROSIS
     Dosage: UNK
     Route: 065
     Dates: start: 2018

REACTIONS (5)
  - Gait disturbance [Unknown]
  - Weight decreased [Unknown]
  - Condition aggravated [Unknown]
  - Dysphagia [Unknown]
  - Memory impairment [Unknown]

NARRATIVE: CASE EVENT DATE: 201903
